FAERS Safety Report 13407044 (Version 1)
Quarter: 2017Q2

REPORT INFORMATION
  Report Type: Spontaneous
  Country: US (occurrence: US)
  Receive Date: 20170405
  Receipt Date: 20170405
  Transmission Date: 20170830
  Serious: Yes (Hospitalization, Other)
  Sender: FDA-Public Use
  Company Number: US-SHIRE-US201707473

PATIENT
  Sex: Female

DRUGS (2)
  1. IRON                               /00023503/ [Concomitant]
     Active Substance: IRON
     Indication: ANAEMIA
     Dosage: UNK, UNKNOWN
     Route: 048
     Dates: start: 2014
  2. PENTASA [Suspect]
     Active Substance: MESALAMINE
     Indication: CROHN^S DISEASE
     Dosage: 2000 MG, 2X/DAY:BID (FOUR 500 MY CAPSULES)
     Route: 048
     Dates: start: 2014, end: 20170201

REACTIONS (4)
  - Anxiety [Not Recovered/Not Resolved]
  - Blood count abnormal [Recovered/Resolved]
  - Haematochezia [Recovered/Resolved]
  - Off label use [Recovered/Resolved]

NARRATIVE: CASE EVENT DATE: 2014
